FAERS Safety Report 10234970 (Version 1)
Quarter: 2014Q2

REPORT INFORMATION
  Report Type: Spontaneous
  Country: US (occurrence: US)
  Receive Date: 20140613
  Receipt Date: 20140613
  Transmission Date: 20141212
  Serious: Yes (Hospitalization, Congenital Anomaly)
  Sender: FDA-Public Use
  Company Number: US-BAYER-2014-083900

PATIENT
  Sex: Male

DRUGS (10)
  1. ACETYLSALICYLIC ACID({=100 MG) [Suspect]
     Route: 064
  2. ACETYLSALICYLIC ACID({=100 MG) [Suspect]
     Route: 064
  3. PROGESTERONE (SOLUTION) [Suspect]
     Route: 064
  4. PROGESTERONE (SOLUTION) [Suspect]
     Route: 064
  5. PROCARDIA [Concomitant]
  6. PROCARDIA [Concomitant]
  7. LOVENOX [Concomitant]
  8. LOVENOX [Concomitant]
  9. ARMOUR THYROID [Concomitant]
  10. ARMOUR THYROID [Concomitant]

REACTIONS (6)
  - Low birth weight baby [None]
  - Fallot^s tetralogy [None]
  - Venous thrombosis [None]
  - Varicose vein [None]
  - Foetal growth restriction [None]
  - Foetal exposure timing unspecified [None]
